FAERS Safety Report 8947698 (Version 1)
Quarter: 2012Q4

REPORT INFORMATION
  Report Type: 
  Country: US (occurrence: US)
  Receive Date: 20121204
  Receipt Date: 20121204
  Transmission Date: 20130627
  Serious: No
  Sender: FDA-Public Use
  Company Number: US-B.I. PHARMACEUTICALS,INC./RIDGEFIELD-2012-BI-02100BP

PATIENT
  Age: 88 None
  Sex: Female

DRUGS (16)
  1. SPIRIVA [Suspect]
     Indication: CHRONIC OBSTRUCTIVE PULMONARY DISEASE
     Dosage: 18 mcg
     Route: 055
     Dates: start: 20120601
  2. ASPIRIN [Concomitant]
     Indication: CARDIAC DISORDER
     Dosage: 162 mg
     Route: 048
     Dates: start: 201206
  3. PROBIOTIC [Concomitant]
     Indication: GASTROINTESTINAL DISORDER
     Route: 048
     Dates: start: 2008
  4. VITAMIN C [Concomitant]
     Indication: VITAMIN SUPPLEMENTATION
     Route: 048
     Dates: start: 1995
  5. PANTOPRAZOLE [Concomitant]
     Indication: ABDOMINAL DISCOMFORT
     Dosage: 40 mg
     Route: 048
     Dates: start: 201206
  6. VITAMIN D [Concomitant]
     Indication: VITAMIN SUPPLEMENTATION
     Dosage: 1000 mg
     Route: 048
     Dates: start: 1995
  7. MAGNESIUM [Concomitant]
     Indication: MINERAL SUPPLEMENTATION
     Dosage: 1000 mg
     Route: 048
     Dates: start: 1995
  8. AMIODORONE [Concomitant]
     Indication: HEART RATE ABNORMAL
     Dosage: 200 mg
     Route: 048
     Dates: start: 201206
  9. VITAMIN E [Concomitant]
     Indication: VITAMIN SUPPLEMENTATION
     Route: 048
     Dates: start: 1995
  10. DIGOXIN [Concomitant]
     Indication: CARDIAC DISORDER
     Route: 048
     Dates: start: 201206
  11. OMEGA 3 6 9 [Concomitant]
     Indication: SUPPLEMENTATION THERAPY
     Route: 048
     Dates: start: 1995
  12. POTASSIUM [Concomitant]
     Indication: SUPPLEMENTATION THERAPY
     Dosage: 30 mEq
     Route: 048
     Dates: start: 201206
  13. NITROGLYCERINE [Concomitant]
     Indication: CHEST PAIN
     Dates: start: 201206
  14. FUROSEMIDE [Concomitant]
     Indication: FLUID RETENTION
     Dosage: 40 mg
     Route: 048
     Dates: start: 201206
  15. LOSARTAN [Concomitant]
     Indication: HYPERTENSION
     Dosage: 25 mg
     Route: 048
     Dates: start: 201206
  16. SLOW FE [Concomitant]
     Indication: MINERAL SUPPLEMENTATION
     Route: 048
     Dates: start: 201206

REACTIONS (7)
  - Dry mouth [Not Recovered/Not Resolved]
  - Swollen tongue [Not Recovered/Not Resolved]
  - Lip swelling [Not Recovered/Not Resolved]
  - Epistaxis [Recovered/Resolved]
  - Abnormal loss of weight [Unknown]
  - Balance disorder [Not Recovered/Not Resolved]
  - Fall [Recovered/Resolved]
